FAERS Safety Report 15398331 (Version 2)
Quarter: 2018Q3

REPORT INFORMATION
  Report Type: Spontaneous
  Country: JP (occurrence: JP)
  Receive Date: 20180918
  Receipt Date: 20180924
  Transmission Date: 20181010
  Serious: Yes (Death, Other)
  Sender: FDA-Public Use
  Company Number: JP-JNJFOC-20180918353

PATIENT
  Age: 53 Year
  Sex: Female

DRUGS (3)
  1. HEPARIN [Interacting]
     Active Substance: HEPARIN SODIUM
     Indication: TROUSSEAU^S SYNDROME
     Route: 042
  2. XARELTO [Suspect]
     Active Substance: RIVAROXABAN
     Indication: TROUSSEAU^S SYNDROME
     Route: 048
  3. HEPARIN [Interacting]
     Active Substance: HEPARIN SODIUM
     Indication: TROUSSEAU^S SYNDROME
     Route: 042

REACTIONS (9)
  - Multiple organ dysfunction syndrome [Fatal]
  - Endocarditis noninfective [Fatal]
  - Haemorrhage intracranial [Unknown]
  - Product use in unapproved indication [Unknown]
  - Cardiac failure acute [Fatal]
  - Off label use [Unknown]
  - Embolism [Fatal]
  - Labelled drug-drug interaction medication error [Unknown]
  - Aortic valve incompetence [Fatal]
